FAERS Safety Report 15226987 (Version 1)
Quarter: 2018Q3

REPORT INFORMATION
  Report Type: Report from Study
  Country: ES (occurrence: ES)
  Receive Date: 20180801
  Receipt Date: 20180801
  Transmission Date: 20181010
  Serious: Yes (Hospitalization)
  Sender: FDA-Public Use
  Company Number: ES-PFIZER INC-2018303382

PATIENT
  Age: 72 Year
  Sex: Female

DRUGS (6)
  1. SPIRONOLACTONE. [Suspect]
     Active Substance: SPIRONOLACTONE
     Indication: LIVER DISORDER
     Dosage: 100 MG, 1X/DAY
     Route: 048
     Dates: start: 20151123, end: 20170510
  2. FUROSEMIDE. [Interacting]
     Active Substance: FUROSEMIDE
     Indication: LIVER DISORDER
  3. FUROSEMIDE. [Interacting]
     Active Substance: FUROSEMIDE
     Indication: PORTAL HYPERTENSION
     Dosage: 40 MG, UNK
     Route: 048
     Dates: start: 20150908, end: 20170510
  4. FEBUXOSTAT. [Concomitant]
     Active Substance: FEBUXOSTAT
     Indication: HYPERURICAEMIA
     Dosage: 80 MG, 1X/DAY (1?0?0)
     Route: 048
     Dates: start: 20150908
  5. OMEPRAZOLE. [Concomitant]
     Active Substance: OMEPRAZOLE
     Indication: PROPHYLAXIS
     Dosage: 20 MG, 1X/DAY (1?0?0)
     Route: 048
     Dates: start: 20151026
  6. SPIRONOLACTONE. [Interacting]
     Active Substance: SPIRONOLACTONE
     Indication: PORTAL HYPERTENSION

REACTIONS (2)
  - Drug interaction [Recovered/Resolved]
  - Hyponatraemia [Recovered/Resolved]

NARRATIVE: CASE EVENT DATE: 20170510
